FAERS Safety Report 7987718-9 (Version None)
Quarter: 2011Q4

REPORT INFORMATION
  Report Type: 
  Country: None (occurrence: None)
  Receive Date: 20111216
  Receipt Date: 20110502
  Transmission Date: 20120403
  Serious: No
  Sender: FDA-Public Use
  Company Number: US-BRISTOL-MYERS SQUIBB COMPANY-15709199

PATIENT
  Age: 63 Year
  Sex: Female
  Weight: 73 kg

DRUGS (7)
  1. ZOLOFT [Concomitant]
     Indication: DEPRESSION
     Dates: start: 20110407
  2. SYNTHROID [Concomitant]
  3. KLONOPIN [Concomitant]
  4. MOBIC [Concomitant]
  5. ADIPEX-P [Suspect]
     Indication: WEIGHT DECREASED
     Dates: start: 20110427
  6. ABILIFY [Suspect]
     Indication: DEPRESSION
     Dates: start: 20110407
  7. CALCIUM [Concomitant]

REACTIONS (1)
  - MUSCLE SPASMS [None]
